FAERS Safety Report 13453339 (Version 1)
Quarter: 2017Q2

REPORT INFORMATION
  Report Type: Spontaneous
  Country: US (occurrence: US)
  Receive Date: 20170418
  Receipt Date: 20170418
  Transmission Date: 20170830
  Serious: No
  Sender: FDA-Public Use
  Company Number: US-ALLERGAN-1654909US

PATIENT
  Sex: Male

DRUGS (3)
  1. LUMIGAN [Suspect]
     Active Substance: BIMATOPROST
     Indication: INTRAOCULAR PRESSURE TEST
     Dosage: 1 GTT, QHS
     Route: 047
     Dates: start: 2015
  2. REFRESH TEARS [Suspect]
     Active Substance: CARBOXYMETHYLCELLULOSE SODIUM
     Indication: PRODUCT USED FOR UNKNOWN INDICATION
  3. LUMIGAN [Suspect]
     Active Substance: BIMATOPROST
     Dosage: UNK

REACTIONS (2)
  - Foreign body sensation in eyes [Recovering/Resolving]
  - Drug ineffective [Unknown]
